FAERS Safety Report 4534321-9 (Version None)
Quarter: 2004Q4

REPORT INFORMATION
  Report Type: 
  Country: None (occurrence: None)
  Receive Date: 20041220
  Receipt Date: 20041220
  Transmission Date: 20050328
  Serious: Yes (Other)
  Sender: FDA-Public Use
  Company Number: None

PATIENT
  Age: 51 Year
  Sex: Male
  Weight: 76.1 kg

DRUGS (2)
  1. IVIG   12%   CARIMUNE NF [Suspect]
     Indication: CHRONIC LYMPHOCYTIC LEUKAEMIA
     Dosage: 30 GMS IV
     Route: 042
     Dates: start: 20041111
  2. IVIG   12%   CARIMUNE NF [Suspect]

REACTIONS (1)
  - MUSCULOSKELETAL DISCOMFORT [None]
